FAERS Safety Report 7942131-5 (Version None)
Quarter: 2011Q4

REPORT INFORMATION
  Report Type: 
  Country: None (occurrence: None)
  Receive Date: 20111114
  Receipt Date: 20110620
  Transmission Date: 20120403
  Serious: Yes (Other)
  Sender: FDA-Public Use
  Company Number: 2011029010

PATIENT
  Sex: Female
  Weight: 48 kg

DRUGS (7)
  1. MULTIVITAMIN [Concomitant]
  2. KEPPRA [Concomitant]
  3. VALPROIC ACID [Concomitant]
  4. MIRALAX [Concomitant]
  5. HIZENTRA [Suspect]
     Indication: CHRONIC SINUSITIS
     Dosage: SEE IMAGE
     Route: 058
     Dates: start: 20110613
  6. HIZENTRA [Suspect]
     Indication: IMMUNODEFICIENCY
     Dosage: SEE IMAGE
     Route: 058
     Dates: start: 20110613
  7. HIZENTRA [Suspect]

REACTIONS (1)
  - CONVULSION [None]
